FAERS Safety Report 8109550-8 (Version None)
Quarter: 2012Q1

REPORT INFORMATION
  Report Type: 
  Country: None (occurrence: None)
  Receive Date: 20120202
  Receipt Date: 20120120
  Transmission Date: 20120608
  Serious: Yes (Other)
  Sender: FDA-Public Use
  Company Number: GB-MYLANLABS-2012S1001799

PATIENT
  Age: 73 Year
  Sex: Male

DRUGS (3)
  1. BLEOMYCIN SULFATE [Suspect]
     Indication: TESTICULAR GERM CELL CANCER
     Dosage: 30 000 IU ONCE PER CYCLE ON DAY 2
     Route: 065
  2. ETOPOSIDE [Suspect]
     Indication: TESTICULAR GERM CELL CANCER
     Dosage: 500 MG/M2 PER CYCLE
     Route: 065
  3. CISPLATIN [Suspect]
     Indication: TESTICULAR GERM CELL CANCER
     Dosage: 100 MG/M2 PER CYCLE
     Route: 065

REACTIONS (3)
  - VOMITING [None]
  - TINNITUS [None]
  - FEBRILE NEUTROPENIA [None]
